FAERS Safety Report 20084583 (Version 2)
Quarter: 2021Q4

REPORT INFORMATION
  Report Type: Spontaneous
  Country: US (occurrence: US)
  Receive Date: 20211118
  Receipt Date: 20211210
  Transmission Date: 20220303
  Serious: No
  Sender: FDA-Public Use
  Company Number: US-BAUSCH-BL-2021-037197

PATIENT
  Age: 64 Year
  Sex: Female

DRUGS (3)
  1. LACRISERT [Suspect]
     Active Substance: HYDROXYPROPYL CELLULOSE
     Indication: Dry eye
     Dosage: 1 INSERT IN EACH EYE AT NIGHT TIME
     Route: 047
     Dates: start: 1993
  2. LACRISERT [Suspect]
     Active Substance: HYDROXYPROPYL CELLULOSE
     Dosage: THE REPORTER HAD BEEN RATIONING HER 90-DAYS SUPPLY BY USING 1 INSERT EVERY OTHER DAY
     Route: 047
     Dates: end: 20211107
  3. TEAR DROPS [Concomitant]

REACTIONS (3)
  - Eye pain [Not Recovered/Not Resolved]
  - Therapy interrupted [Not Recovered/Not Resolved]
  - Intentional product use issue [Unknown]

NARRATIVE: CASE EVENT DATE: 20211108
